FAERS Safety Report 9999225 (Version 1)
Quarter: 2014Q1

REPORT INFORMATION
  Report Type: Spontaneous
  Country: NO (occurrence: NO)
  Receive Date: 20140312
  Receipt Date: 20140312
  Transmission Date: 20141002
  Serious: Yes (Life-Threatening, Hospitalization)
  Sender: FDA-Public Use
  Company Number: NO-JNJFOC-20140306196

PATIENT
  Age: 62 Year
  Sex: Female
  Weight: 40 kg

DRUGS (11)
  1. XARELTO [Suspect]
     Indication: EMBOLISM VENOUS
     Route: 048
     Dates: start: 20140122, end: 20140126
  2. XARELTO [Suspect]
     Indication: DEEP VEIN THROMBOSIS
     Route: 048
     Dates: start: 20140122, end: 20140126
  3. XARELTO [Suspect]
     Indication: PULMONARY EMBOLISM
     Route: 048
     Dates: start: 20140122, end: 20140126
  4. ACETYLSALICYLIC ACID [Concomitant]
     Route: 065
  5. SAROTEX [Concomitant]
     Route: 065
  6. MOVICOL [Concomitant]
     Route: 065
  7. DOLCONTIN [Concomitant]
     Route: 065
  8. ORUDIS (KETOPROFEN) [Concomitant]
     Route: 065
  9. PULMICORT [Concomitant]
     Route: 055
  10. LAKTULOSE [Concomitant]
     Route: 065
  11. KLEXANE [Concomitant]
     Route: 058

REACTIONS (3)
  - Dyspnoea [Recovering/Resolving]
  - Pneumonitis [Recovering/Resolving]
  - Oxygen saturation decreased [Recovering/Resolving]
